FAERS Safety Report 7331083-7 (Version None)
Quarter: 2011Q1

REPORT INFORMATION
  Report Type: 
  Country: None (occurrence: None)
  Receive Date: 20110304
  Receipt Date: 20110222
  Transmission Date: 20110831
  Serious: Yes (Death, Hospitalization)
  Sender: FDA-Public Use
  Company Number: JP-JNJFOC-20110208181

PATIENT
  Sex: Female
  Weight: 42 kg

DRUGS (9)
  1. DOXORUBICIN HCL [Suspect]
     Dosage: CYCLE 1
     Route: 042
  2. LACTATED RINGER'S [Concomitant]
     Indication: MALAISE
     Route: 041
  3. DOXORUBICIN HCL [Suspect]
     Indication: OVARIAN CANCER RECURRENT
     Dosage: CYCLE 2
     Route: 042
  4. GABAPEN [Concomitant]
     Indication: OVARIAN CANCER RECURRENT
     Route: 048
  5. SOLDEM 3A [Concomitant]
     Indication: MALAISE
     Route: 041
  6. MUCOSTA [Concomitant]
     Indication: OVARIAN CANCER RECURRENT
     Route: 048
  7. VOLTAREN [Concomitant]
     Indication: OVARIAN CANCER RECURRENT
     Route: 048
  8. GRAN [Concomitant]
     Indication: NEUTROPHIL COUNT DECREASED
     Route: 058
  9. FLUMARIN [Concomitant]
     Indication: PROPHYLAXIS
     Route: 041

REACTIONS (2)
  - MALAISE [None]
  - OVARIAN CANCER [None]
